FAERS Safety Report 24843938 (Version 1)
Quarter: 2025Q1

REPORT INFORMATION
  Report Type: Spontaneous
  Country: US (occurrence: US)
  Receive Date: 20250115
  Receipt Date: 20250115
  Transmission Date: 20250408
  Serious: No
  Sender: VIIV
  Company Number: US-VIIV HEALTHCARE-US2025AMR004193

PATIENT
  Sex: Female

DRUGS (3)
  1. CABOTEGRAVIR [Suspect]
     Active Substance: CABOTEGRAVIR
     Indication: Medical counselling
     Dosage: 600 MG, MO, ONE MONTH THEN CONTINUE EVERY 2 MONTHS
     Route: 030
  2. CABOTEGRAVIR [Suspect]
     Active Substance: CABOTEGRAVIR
     Indication: HIV test
  3. CABOTEGRAVIR [Suspect]
     Active Substance: CABOTEGRAVIR

REACTIONS (3)
  - Hot flush [Recovered/Resolved]
  - Pyrexia [Recovered/Resolved]
  - Hepatic steatosis [Not Recovered/Not Resolved]
